FAERS Safety Report 24563830 (Version 1)
Quarter: 2024Q4

REPORT INFORMATION
  Report Type: Report from Study
  Country: CA (occurrence: CA)
  Receive Date: 20241030
  Receipt Date: 20241030
  Transmission Date: 20250114
  Serious: Yes (Other)
  Sender: Alvotech
  Company Number: CA-JAMP PHARMA CORPORATION-2024-JAM-CA-01641

PATIENT
  Age: 34 Year
  Sex: Female

DRUGS (3)
  1. SIMLANDI [Suspect]
     Active Substance: ADALIMUMAB-RYVK
     Indication: Colitis ulcerative
     Dosage: 40 MILLIGRAM, WEEKLY
     Route: 058
     Dates: start: 202408
  2. PREDNISONE [Concomitant]
     Active Substance: PREDNISONE
     Indication: Product used for unknown indication
     Route: 065
  3. SIMLANDI [Suspect]
     Active Substance: ADALIMUMAB-RYVK
     Indication: Colitis ulcerative
     Dosage: 40 MILLIGRAM, EVERY 2 WEEKS
     Route: 058
     Dates: start: 20240719

REACTIONS (6)
  - Rectal haemorrhage [Not Recovered/Not Resolved]
  - General symptom [Unknown]
  - Abdominal pain [Not Recovered/Not Resolved]
  - Drug effect less than expected [Unknown]
  - Off label use [Unknown]
  - Exposure during pregnancy [Unknown]

NARRATIVE: CASE EVENT DATE: 20240801
